FAERS Safety Report 4978408-5 (Version None)
Quarter: 2006Q1

REPORT INFORMATION
  Report Type: 
  Country: None (occurrence: None)
  Receive Date: 20060228
  Receipt Date: 20050428
  Transmission Date: 20060701
  Serious: Yes (Other)
  Sender: FDA-Public Use
  Company Number: 2005067804

PATIENT
  Age: 69 Year
  Sex: Male

DRUGS (3)
  1. NIFEDIPINE [Suspect]
     Indication: HYPERTENSION
     Dosage: 60 MG (QD), ORAL
     Route: 048
     Dates: start: 20050404
  2. CLONIDINE [Suspect]
     Indication: HYPERTENSION
     Dosage: 0.2 MG (SINGLE),ORAL
     Route: 048
     Dates: start: 20050404, end: 20050404
  3. ESOMEPRAZOLE MAGNESIUM (ESOMEPRAZOLE MAGNESIUM) [Concomitant]

REACTIONS (1)
  - HYPOTENSION [None]
